FAERS Safety Report 5765694-7 (Version None)
Quarter: 2008Q2

REPORT INFORMATION
  Report Type: 
  Country: None (occurrence: None)
  Receive Date: 20080606
  Receipt Date: 20080528
  Transmission Date: 20081010
  Serious: Yes (Death)
  Sender: FDA-Public Use
  Company Number: 163-21880-08031616

PATIENT
  Age: 65 Year
  Sex: Male

DRUGS (1)
  1. REVLIMID [Suspect]
     Indication: MULTIPLE MYELOMA
     Dosage: 15 MG, 1 IN 1 D, ORAL
     Route: 048
     Dates: start: 20070503, end: 20071101

REACTIONS (10)
  - ASTHENIA [None]
  - CANDIDIASIS [None]
  - CARDIAC FAILURE [None]
  - DYSPHAGIA [None]
  - GAIT DISTURBANCE [None]
  - HYPOAESTHESIA [None]
  - OEDEMA PERIPHERAL [None]
  - ORAL PAIN [None]
  - PAIN IN EXTREMITY [None]
  - SEPSIS [None]
